FAERS Safety Report 12466850 (Version 1)
Quarter: 2016Q2

REPORT INFORMATION
  Report Type: Spontaneous
  Country: US (occurrence: None)
  Receive Date: 20160614
  Receipt Date: 20160614
  Transmission Date: 20160815
  Serious: No
  Sender: FDA-Public Use
  Company Number: None

PATIENT
  Sex: Female

DRUGS (1)
  1. NALTREXONE HCL NALTREXONE [Suspect]
     Active Substance: NALTREXONE HYDROCHLORIDE

REACTIONS (8)
  - Fatigue [None]
  - Insomnia [None]
  - Frustration tolerance decreased [None]
  - Anxiety [None]
  - Headache [None]
  - Drug dispensing error [None]
  - Palpitations [None]
  - Incorrect dose administered [None]
